FAERS Safety Report 14184198 (Version 5)
Quarter: 2019Q4

REPORT INFORMATION
  Report Type: Spontaneous
  Country: BE (occurrence: BE)
  Receive Date: 20171113
  Receipt Date: 20191010
  Transmission Date: 20200122
  Serious: Yes (Death, Hospitalization, Other)
  Sender: FDA-Public Use
  Company Number: BE-SA-2017SA222615

PATIENT
  Age: 54 Year
  Sex: Female
  Weight: 57 kg

DRUGS (4)
  1. BIO CLIMAL [Concomitant]
  2. LYRICA [Concomitant]
     Active Substance: PREGABALIN
     Dosage: 75 MG, HS
  3. ANGELIQ [Concomitant]
     Active Substance: DROSPIRENONE\ESTRADIOL
  4. AUBAGIO [Suspect]
     Active Substance: TERIFLUNOMIDE
     Indication: MULTIPLE SCLEROSIS
     Dosage: 14 MG,QD
     Route: 048
     Dates: start: 20141101, end: 2017

REACTIONS (23)
  - Ventricular tachycardia [Not Recovered/Not Resolved]
  - Decreased appetite [Unknown]
  - Cardiac failure [Not Recovered/Not Resolved]
  - Fall [Unknown]
  - Confusional state [Unknown]
  - Abdominal discomfort [Unknown]
  - Weight decreased [Unknown]
  - Cholangiocarcinoma [Unknown]
  - Cold sweat [Not Recovered/Not Resolved]
  - Romberg test positive [Unknown]
  - Hypotension [Not Recovered/Not Resolved]
  - Metastases to liver [Unknown]
  - Wound dehiscence [Unknown]
  - Extensor plantar response [Unknown]
  - Pulse pressure decreased [Not Recovered/Not Resolved]
  - Abdominal pain [Unknown]
  - Cholecystitis acute [Unknown]
  - Gallbladder abscess [Unknown]
  - Restlessness [Unknown]
  - Hypoaesthesia [Unknown]
  - Cholelithiasis [Fatal]
  - Malaise [Unknown]
  - Anxiety [Unknown]

NARRATIVE: CASE EVENT DATE: 2017
